FAERS Safety Report 4537676-4 (Version None)
Quarter: 2005Q1

REPORT INFORMATION
  Report Type: 
  Country: None (occurrence: None)
  Receive Date: 20041216
  Receipt Date: 20040524
  Transmission Date: 20050727
  Serious: Yes (Hospitalization, Other)
  Sender: FDA-Public Use
  Company Number: HQWYE102025MAY04

PATIENT
  Age: 48 Year
  Sex: Male

DRUGS (1)
  1. EFFEXOR XR [Suspect]
     Indication: DEPRESSION
     Dosage: 75 MG 1X PER 1 DAY, ORAL
     Route: 048
     Dates: start: 20031218, end: 20040329

REACTIONS (3)
  - CONVULSION [None]
  - DRUG WITHDRAWAL SYNDROME [None]
  - PARAESTHESIA [None]
